FAERS Safety Report 8881618 (Version 1)
Quarter: 2012Q4

REPORT INFORMATION
  Report Type: Report from Study
  Country: US (occurrence: US)
  Receive Date: 20121102
  Receipt Date: 20121102
  Transmission Date: 20130627
  Serious: Yes (Hospitalization, Other)
  Sender: FDA-Public Use
  Company Number: US-ABBOTT-12P-163-1001026-00

PATIENT
  Age: 24 None
  Sex: Male
  Weight: 49.49 kg

DRUGS (6)
  1. HUMIRA [Suspect]
     Indication: CROHN^S DISEASE
     Dates: start: 201112, end: 201201
  2. HUMIRA [Suspect]
     Dosage: 40 mg
     Dates: start: 20121006
  3. PREDNISONE [Concomitant]
     Indication: PRODUCT USED FOR UNKNOWN INDICATION
  4. SUBOXONE [Concomitant]
     Indication: PRODUCT USED FOR UNKNOWN INDICATION
  5. AZATHIOPRINE [Concomitant]
     Indication: PRODUCT USED FOR UNKNOWN INDICATION
  6. KLONOPIN [Concomitant]
     Indication: PRODUCT USED FOR UNKNOWN INDICATION

REACTIONS (12)
  - Anal stenosis [Unknown]
  - Nausea [Unknown]
  - Vomiting [Recovered/Resolved]
  - Abdominal pain lower [Unknown]
  - Abdominal pain upper [Recovered/Resolved]
  - Crohn^s disease [Unknown]
  - Weight decreased [Not Recovered/Not Resolved]
  - Fistula [Not Recovered/Not Resolved]
  - Abdominal pain upper [Unknown]
  - Abdominal pain [Recovered/Resolved]
  - Crohn^s disease [Unknown]
  - Vomiting [Unknown]
